FAERS Safety Report 9200267 (Version 2)
Quarter: 2013Q2

REPORT INFORMATION
  Report Type: Spontaneous
  Country: FR (occurrence: FR)
  Receive Date: 20130329
  Receipt Date: 20130510
  Transmission Date: 20140414
  Serious: Yes (Hospitalization)
  Sender: FDA-Public Use
  Company Number: FR-009507513-1303FRA012402

PATIENT
  Age: 18 Year
  Sex: Female

DRUGS (3)
  1. PUREGON [Suspect]
     Indication: OVULATION INDUCTION
     Dosage: UNK
     Route: 058
     Dates: start: 201301, end: 201302
  2. GONAL-F [Suspect]
     Indication: OVULATION INDUCTION
     Dosage: 62.5 IU, QD
     Route: 058
     Dates: start: 20130226, end: 20130307
  3. FOLIC ACID [Concomitant]
     Dosage: UNK

REACTIONS (1)
  - Paraesthesia [Not Recovered/Not Resolved]
